FAERS Safety Report 4985995-X (Version None)
Quarter: 2006Q1

REPORT INFORMATION
  Report Type: 
  Country: None (occurrence: None)
  Receive Date: 20060309
  Receipt Date: 20051223
  Transmission Date: 20060701
  Serious: Yes (Other)
  Sender: FDA-Public Use
  Company Number: 430001

PATIENT
  Age: 14 Year
  Sex: Male

DRUGS (1)
  1. ACCUTANE [Suspect]
     Indication: ACNE
     Dosage: 20 MG 2 PER DAY ORAL
     Route: 048
     Dates: start: 20051115, end: 20051213

REACTIONS (3)
  - HEADACHE [None]
  - NAUSEA [None]
  - NECK PAIN [None]
